FAERS Safety Report 24906506 (Version 1)
Quarter: 2025Q1

REPORT INFORMATION
  Report Type: Spontaneous
  Country: US (occurrence: US)
  Receive Date: 20250130
  Receipt Date: 20250130
  Transmission Date: 20250409
  Serious: No
  Sender: MYLAN
  Company Number: US-MYLANLABS-2025M1006147

PATIENT
  Sex: Female

DRUGS (3)
  1. ESTRADIOL TRANSDERMAL SYSTEM [Suspect]
     Active Substance: ESTRADIOL
     Indication: Product used for unknown indication
     Route: 062
  2. MINIVELLE [Concomitant]
     Active Substance: ESTRADIOL
     Route: 062
  3. VIVELLE-DOT [Concomitant]
     Active Substance: ESTRADIOL
     Route: 062

REACTIONS (7)
  - Fluid retention [Unknown]
  - Application site irritation [Unknown]
  - Application site pain [Unknown]
  - Dizziness [Unknown]
  - Application site hypersensitivity [Unknown]
  - Product adhesion issue [Unknown]
  - Product substitution issue [Unknown]
